FAERS Safety Report 13358551 (Version 1)
Quarter: 2017Q1

REPORT INFORMATION
  Report Type: Spontaneous
  Country: DE (occurrence: DE)
  Receive Date: 20170322
  Receipt Date: 20170322
  Transmission Date: 20170429
  Serious: Yes (Congenital Anomaly)
  Sender: FDA-Public Use
  Company Number: DE-TEVA-749611GER

PATIENT
  Age: 1 Day
  Sex: Male

DRUGS (6)
  1. UTROGEST [Concomitant]
     Active Substance: PROGESTERONE
     Indication: PROPHYLAXIS OF ABORTION
     Dosage: 100 MILLIGRAM DAILY;
     Route: 064
  2. DEXAMETHASONE. [Suspect]
     Active Substance: DEXAMETHASONE
     Indication: HYPEREMESIS GRAVIDARUM
     Route: 064
     Dates: start: 20160206, end: 20160212
  3. VOMEX A [Suspect]
     Active Substance: DIMENHYDRINATE
     Indication: HYPEREMESIS GRAVIDARUM
     Dosage: 7 DAYS INTRAVENOUSLY AT GW 7 TO 8 AND 1 TABLET IN GW 10
     Route: 064
  4. FEMIBION SCHWANGERSCHAFT 1 [Concomitant]
     Indication: PROPHYLAXIS OF NEURAL TUBE DEFECT
     Dosage: .8 MILLIGRAM DAILY;
     Route: 064
  5. PARACETAMOL [Concomitant]
     Active Substance: ACETAMINOPHEN
     Indication: NASOPHARYNGITIS
     Dosage: 2 TABLETS WITH 500 MG
     Route: 064
  6. AGYRAX [Suspect]
     Active Substance: MECLIZINE HYDROCHLORIDE
     Indication: HYPEREMESIS GRAVIDARUM
     Dosage: 25 MILLIGRAM DAILY;
     Route: 064
     Dates: start: 20160205, end: 20160331

REACTIONS (3)
  - Dacryostenosis congenital [Unknown]
  - Foetal exposure during pregnancy [Unknown]
  - Ventricular septal defect [Not Recovered/Not Resolved]

NARRATIVE: CASE EVENT DATE: 20160906
